FAERS Safety Report 7001015-X (Version None)
Quarter: 2010Q3

REPORT INFORMATION
  Report Type: 
  Country: None (occurrence: None)
  Receive Date: 20100920
  Receipt Date: 20100412
  Transmission Date: 20110219
  Serious: Yes (Other)
  Sender: FDA-Public Use
  Company Number: US-ASTRAZENECA-2009UW17999

PATIENT
  Age: 12346 Day
  Sex: Male

DRUGS (1)
  1. SEROQUEL [Suspect]
     Dosage: 25-100 MG
     Route: 048
     Dates: start: 20020513, end: 20061122

REACTIONS (1)
  - DIABETES MELLITUS [None]
